FAERS Safety Report 17411602 (Version 1)
Quarter: 2020Q1

REPORT INFORMATION
  Report Type: Spontaneous
  Country: GB (occurrence: GB)
  Receive Date: 20200213
  Receipt Date: 20200213
  Transmission Date: 20200409
  Serious: No
  Sender: FDA-Public Use
  Company Number: GB-ALKEM LABORATORIES LIMITED-GB-ALKEM-2019-10910

PATIENT
  Age: 48 Year
  Sex: Female
  Weight: 84 kg

DRUGS (11)
  1. CANDESARTAN. [Concomitant]
     Active Substance: CANDESARTAN
     Indication: ILL-DEFINED DISORDER
     Dosage: UNK(TAKE ONE EACH MORNING FOR BLOOD PRESSURE)
     Route: 005
     Dates: start: 20180921
  2. LYMECYCLINE [Concomitant]
     Active Substance: LYMECYCLINE
     Indication: ILL-DEFINED DISORDER
     Dosage: UNK(ONE TABLET ONCE DAILY TO PREVENT RECURRENT SKIN...)
     Route: 065
     Dates: start: 20190123
  3. ATORVASTATIN [Concomitant]
     Active Substance: ATORVASTATIN
     Indication: ILL-DEFINED DISORDER
     Dosage: UNK(TAKE ONE EACH EVENING TO LOWER CHOLESTEROL)
     Route: 065
     Dates: start: 20180921
  4. LEVEMIR [Concomitant]
     Active Substance: INSULIN DETEMIR
     Indication: ILL-DEFINED DISORDER
     Dosage: UNK(USE AS DIRECTED)
     Route: 065
     Dates: start: 20180921
  5. MORPHGESIC [Concomitant]
     Active Substance: MORPHINE SULFATE
     Indication: ILL-DEFINED DISORDER
     Dosage: UNK(TAKE TWO AT NIGHT TO REPLACE A 30MG TABLET)
     Route: 065
     Dates: start: 20180921
  6. QUININE SULPHATE [Concomitant]
     Active Substance: QUININE SULFATE
     Indication: ILL-DEFINED DISORDER
     Dosage: UNK(TAKE ONE DAILY)
     Route: 065
     Dates: start: 20180921
  7. CODEINE PHOSPHATE [Concomitant]
     Active Substance: CODEINE PHOSPHATE
     Indication: ILL-DEFINED DISORDER
     Dosage: UNK(TAKE ONE TO TWO TABLET UPTO FOUR TIMES DAILY, F...)
     Route: 065
     Dates: start: 20190617, end: 20190715
  8. NOVORAPID [Concomitant]
     Active Substance: INSULIN ASPART
     Indication: ILL-DEFINED DISORDER
     Dosage: UNK(USE AS DIRECTED)
     Route: 065
     Dates: start: 20180921
  9. PREGABALIN. [Suspect]
     Active Substance: PREGABALIN
     Indication: PRODUCT USED FOR UNKNOWN INDICATION
     Dosage: UNK
     Route: 065
     Dates: start: 20190805
  10. FLUOXETINE [Concomitant]
     Active Substance: FLUOXETINE HYDROCHLORIDE
     Indication: ILL-DEFINED DISORDER
     Dosage: UNK(ONE CAPSULE IN THE MORNING FOR ANXIETY/DEPRESSION)
     Route: 065
     Dates: start: 20180921
  11. PARACETAMOL [Concomitant]
     Active Substance: ACETAMINOPHEN
     Indication: ILL-DEFINED DISORDER
     Dosage: UNK(ONE OR TWO TABLETS UPTO FOUR TIMES DAILY FOR PAIN)
     Route: 065
     Dates: start: 20190617, end: 20190715

REACTIONS (1)
  - Somnolence [Recovered/Resolved]

NARRATIVE: CASE EVENT DATE: 20190805
